FAERS Safety Report 12730157 (Version 1)
Quarter: 2016Q3

REPORT INFORMATION
  Report Type: Report from Study
  Country: CL (occurrence: CL)
  Receive Date: 20160909
  Receipt Date: 20160909
  Transmission Date: 20161109
  Serious: Yes (Hospitalization, Other)
  Sender: FDA-Public Use
  Company Number: CL-ABBVIE-16K-034-1640163-00

PATIENT
  Age: 37 Year
  Sex: Male

DRUGS (11)
  1. FOLIC ACID. [Concomitant]
     Active Substance: FOLIC ACID
     Indication: ANKYLOSING SPONDYLITIS
  2. HUMIRA [Suspect]
     Active Substance: ADALIMUMAB
     Route: 058
     Dates: start: 2016, end: 20160808
  3. FLEXONO [Concomitant]
     Active Substance: DIHYDROXYALUMINUM AMINOACETATE ANHYDROUS\INDOMETHACIN
     Indication: ANKYLOSING SPONDYLITIS
  4. PREDNISONE. [Concomitant]
     Active Substance: PREDNISONE
     Indication: ANKYLOSING SPONDYLITIS
  5. ATORVASTATIN [Concomitant]
     Active Substance: ATORVASTATIN
     Indication: BLOOD CHOLESTEROL INCREASED
  6. AEROVIAL [Concomitant]
     Indication: PRODUCT USED FOR UNKNOWN INDICATION
  7. METHOTREXATE. [Suspect]
     Active Substance: METHOTREXATE
     Indication: ANKYLOSING SPONDYLITIS
     Route: 065
     Dates: end: 201608
  8. HUMIRA [Suspect]
     Active Substance: ADALIMUMAB
     Indication: ANKYLOSING SPONDYLITIS
     Route: 058
     Dates: start: 20160401, end: 20160501
  9. AZULFIDINE [Concomitant]
     Active Substance: SULFASALAZINE
     Indication: PRODUCT USED FOR UNKNOWN INDICATION
  10. PREDNISONE. [Concomitant]
     Active Substance: PREDNISONE
     Dosage: INCREASED THE DOSE
  11. ISONIAZID. [Concomitant]
     Active Substance: ISONIAZID
     Indication: TUBERCULOSIS

REACTIONS (8)
  - Abscess limb [Recovering/Resolving]
  - Pulmonary mass [Not Recovered/Not Resolved]
  - Obstructive airways disorder [Recovering/Resolving]
  - Nasopharyngitis [Recovering/Resolving]
  - Blood cholesterol increased [Not Recovered/Not Resolved]
  - Asthma [Recovering/Resolving]
  - Choking sensation [Not Recovered/Not Resolved]
  - Rhinovirus infection [Recovering/Resolving]

NARRATIVE: CASE EVENT DATE: 201605
